FAERS Safety Report 5507269-0 (Version None)
Quarter: 2007Q4

REPORT INFORMATION
  Report Type: 
  Country: None (occurrence: None)
  Receive Date: 20071105
  Receipt Date: 20071105
  Transmission Date: 20080405
  Serious: Yes (Other)
  Sender: FDA-Public Use
  Company Number: None

PATIENT
  Sex: Female
  Weight: 78.0187 kg

DRUGS (1)
  1. OPTIRAY 350 [Suspect]
     Indication: SCAN
     Dosage: 100 CC 2 CC PER SEC LTAC

REACTIONS (3)
  - PHARYNGEAL DISORDER [None]
  - RESPIRATORY DISTRESS [None]
  - URTICARIA [None]
